FAERS Safety Report 5060874-0 (Version None)
Quarter: 2006Q3

REPORT INFORMATION
  Report Type: 
  Country: None (occurrence: None)
  Receive Date: 20060719
  Receipt Date: 20060719
  Transmission Date: 20061208
  Serious: Yes (Other)
  Sender: FDA-Public Use
  Company Number: None

PATIENT
  Age: 49 Year
  Sex: Female
  Weight: 175 kg

DRUGS (2)
  1. XIGRIS [Suspect]
     Indication: MULTI-ORGAN FAILURE
     Dosage: 24 MCG/KG/HR CONTINUOUS IV DRIP
     Route: 041
     Dates: start: 20060205, end: 20060206
  2. XIGRIS [Suspect]
     Indication: SEPSIS
     Dosage: 24 MCG/KG/HR CONTINUOUS IV DRIP
     Route: 041
     Dates: start: 20060205, end: 20060206

REACTIONS (2)
  - HAEMATOCRIT DECREASED [None]
  - HAEMOGLOBIN DECREASED [None]
